FAERS Safety Report 8178033-1 (Version None)
Quarter: 2012Q1

REPORT INFORMATION
  Report Type: 
  Country: None (occurrence: None)
  Receive Date: 20120301
  Receipt Date: 20120220
  Transmission Date: 20120608
  Serious: Yes (Hospitalization, Other)
  Sender: FDA-Public Use
  Company Number: FR-ABBOTT-12P-056-0895882-00

PATIENT
  Age: 22 Year
  Sex: Female
  Weight: 55 kg

DRUGS (7)
  1. SPASFON [Concomitant]
     Indication: ABDOMINAL PAIN
     Dates: start: 20081222
  2. HUMIRA [Suspect]
     Indication: CROHN'S DISEASE
     Route: 058
     Dates: start: 20081226, end: 20081226
  3. HUMIRA [Suspect]
     Route: 058
     Dates: start: 20090101, end: 20090101
  4. ACETAMINOPHEN [Concomitant]
     Indication: PAIN
     Dates: start: 20081222
  5. HUMIRA [Suspect]
     Route: 058
     Dates: start: 20090201
  6. CLARITIN [Concomitant]
     Indication: HYPERSENSITIVITY
     Dates: start: 20090701
  7. CLOBETASOL PROPIONATE [Concomitant]
     Indication: SKIN PLAQUE
     Dosage: 1 APPLICATION
     Dates: start: 20100601, end: 20111228

REACTIONS (1)
  - RENAL COLIC [None]
